FAERS Safety Report 4393084-0 (Version None)
Quarter: 2004Q3

REPORT INFORMATION
  Report Type: 
  Country: None (occurrence: None)
  Receive Date: 20040702
  Receipt Date: 20040407
  Transmission Date: 20050211
  Serious: Yes (Other)
  Sender: FDA-Public Use
  Company Number: 2004UW06972

PATIENT
  Age: 57 Year
  Sex: Male
  Weight: 77.1115 kg

DRUGS (6)
  1. CRESTOR [Suspect]
     Indication: BLOOD CHOLESTEROL INCREASED
     Dosage: 10 MG PO
     Route: 048
     Dates: start: 20040301
  2. PROTONIX [Concomitant]
  3. BUSPIRONE [Concomitant]
  4. ASPIRIN [Concomitant]
  5. SULFONAMIDE DUPLEX [Concomitant]
  6. LEVAQUIN [Concomitant]

REACTIONS (3)
  - DYSURIA [None]
  - PROCTALGIA [None]
  - PROSTATE TENDERNESS [None]
